FAERS Safety Report 15906868 (Version 2)
Quarter: 2020Q1

REPORT INFORMATION
  Report Type: Spontaneous
  Country: US (occurrence: US)
  Receive Date: 20190204
  Receipt Date: 20200330
  Transmission Date: 20200409
  Serious: No
  Sender: FDA-Public Use
  Company Number: US-PFIZER INC-2019047265

PATIENT
  Age: 8 Year
  Sex: Female
  Weight: 32.3 kg

DRUGS (3)
  1. GENOTROPIN MQ [Suspect]
     Active Substance: SOMATROPIN
     Indication: PRADER-WILLI SYNDROME
     Dosage: 1 MG, DAILY
     Route: 058
     Dates: start: 20091226
  2. CARNITOR SF [Concomitant]
     Active Substance: LEVOCARNITINE
     Indication: KETOGENIC DIET
     Dosage: 15 ML, DAILY
  3. CORTEF [Concomitant]
     Active Substance: HYDROCORTISONE
     Indication: IMMUNE SYSTEM DISORDER
     Dosage: 50 MG, DAILY

REACTIONS (3)
  - Blood creatinine decreased [Unknown]
  - Blood ketone body increased [Unknown]
  - Blood glucose decreased [Unknown]

NARRATIVE: CASE EVENT DATE: 20180814
